FAERS Safety Report 20633686 (Version 1)
Quarter: 2022Q1

REPORT INFORMATION
  Report Type: Spontaneous
  Country: IT (occurrence: None)
  Receive Date: 20220324
  Receipt Date: 20220324
  Transmission Date: 20220423
  Serious: Yes (Death)
  Sender: FDA-Public Use
  Company Number: 2022A122620

PATIENT
  Age: 84 Year
  Sex: Male

DRUGS (1)
  1. CALQUENCE [Suspect]
     Active Substance: ACALABRUTINIB
     Indication: Chronic lymphocytic leukaemia
     Route: 048
     Dates: start: 202112

REACTIONS (2)
  - Cardiac arrest [Fatal]
  - COVID-19 [Unknown]

NARRATIVE: CASE EVENT DATE: 20220321
